FAERS Safety Report 7047253-1 (Version None)
Quarter: 2010Q4

REPORT INFORMATION
  Report Type: 
  Country: None (occurrence: None)
  Receive Date: 20101015
  Receipt Date: 20101008
  Transmission Date: 20110411
  Serious: Yes (Other)
  Sender: FDA-Public Use
  Company Number: HR-ROCHE-729200

PATIENT

DRUGS (1)
  1. DIAZEPAM (NON-ROCHE/NON-COMPARATOR) [Suspect]
     Indication: ANXIOLYTIC THERAPY
     Route: 064

REACTIONS (1)
  - CONGENITAL GENITOURINARY ABNORMALITY [None]
